FAERS Safety Report 12907886 (Version 1)
Quarter: 2016Q4

REPORT INFORMATION
  Report Type: Spontaneous
  Country: US (occurrence: US)
  Receive Date: 20161102
  Receipt Date: 20161102
  Transmission Date: 20170207
  Serious: Yes (Other)
  Sender: FDA-Public Use
  Company Number: None

PATIENT
  Age: 51 Year
  Sex: Female
  Weight: 73.35 kg

DRUGS (11)
  1. IBUPROFEN. [Concomitant]
     Active Substance: IBUPROFEN
  2. ESTROVEN [Concomitant]
     Active Substance: DIETARY SUPPLEMENT
  3. VITAMIN D [Concomitant]
     Active Substance: CHOLECALCIFEROL
  4. METHOTREXATE. [Concomitant]
     Active Substance: METHOTREXATE
  5. HYDROXYZINE [Concomitant]
     Active Substance: HYDROXYZINE\HYDROXYZINE HYDROCHLORIDE
  6. FOLIC ACID. [Concomitant]
     Active Substance: FOLIC ACID
  7. COQ10 [Concomitant]
     Active Substance: UBIDECARENONE
  8. HUMIRA [Concomitant]
     Active Substance: ADALIMUMAB
  9. L-CARNITINE [Concomitant]
     Active Substance: LEVOCARNITINE
  10. VITAMIN A [Concomitant]
     Active Substance: VITAMIN A
  11. COSENTYX [Suspect]
     Active Substance: SECUKINUMAB
     Indication: PSORIATIC ARTHROPATHY
     Dosage: ?          QUANTITY:1 INJECTION(S);OTHER FREQUENCY:WEEKLY;?
     Route: 030
     Dates: start: 20160809, end: 20160905

REACTIONS (4)
  - Dysphonia [None]
  - Rhinorrhoea [None]
  - Oropharyngeal pain [None]
  - Upper respiratory tract infection [None]

NARRATIVE: CASE EVENT DATE: 20160823
